FAERS Safety Report 9345653 (Version 1)
Quarter: 2013Q2

REPORT INFORMATION
  Report Type: Report from Study
  Country: BR (occurrence: BR)
  Receive Date: 20130613
  Receipt Date: 20130613
  Transmission Date: 20140414
  Serious: Yes (Death)
  Sender: FDA-Public Use
  Company Number: BR-ROCHE-1236224

PATIENT
  Sex: Female
  Weight: 27 kg

DRUGS (2)
  1. PULMOZYME [Suspect]
     Indication: CYSTIC FIBROSIS
     Route: 065
     Dates: start: 199503, end: 2002
  2. AMIKACIN [Suspect]
     Indication: CYSTIC FIBROSIS
     Route: 065

REACTIONS (4)
  - Bronchiectasis [Fatal]
  - Cough [Unknown]
  - Nasopharyngitis [Unknown]
  - Weight decreased [Unknown]
